FAERS Safety Report 18545229 (Version 2)
Quarter: 2020Q4

REPORT INFORMATION
  Report Type: Spontaneous
  Country: US (occurrence: US)
  Receive Date: 20201125
  Receipt Date: 20201231
  Transmission Date: 20210114
  Serious: No
  Sender: FDA-Public Use
  Company Number: US-PFIZER INC-2020465171

PATIENT
  Age: 59 Year
  Sex: Female

DRUGS (1)
  1. XELJANZ XR [Suspect]
     Active Substance: TOFACITINIB CITRATE
     Indication: RHEUMATOID ARTHRITIS
     Dosage: 11 MG, DAILY
     Route: 048
     Dates: start: 202009

REACTIONS (5)
  - Depressed mood [Unknown]
  - Malaise [Unknown]
  - Discouragement [Unknown]
  - Arthritis [Unknown]
  - Arthralgia [Unknown]

NARRATIVE: CASE EVENT DATE: 2020
